FAERS Safety Report 9890568 (Version 1)
Quarter: 2014Q1

REPORT INFORMATION
  Report Type: Spontaneous
  Country: US (occurrence: US)
  Receive Date: 20140212
  Receipt Date: 20140212
  Transmission Date: 20141002
  Serious: Yes (Other)
  Sender: FDA-Public Use
  Company Number: US-CELGENEUS-163-21880-14020849

PATIENT
  Sex: Female
  Weight: 64.92 kg

DRUGS (2)
  1. REVLIMID [Suspect]
     Indication: PLASMA CELL MYELOMA
     Dosage: 15 MILLIGRAM
     Route: 048
     Dates: start: 20130317, end: 20140204
  2. REVLIMID [Suspect]
     Indication: MONOCLONAL GAMMOPATHY

REACTIONS (1)
  - Unevaluable event [Unknown]
